FAERS Safety Report 4746581-X (Version None)
Quarter: 2005Q3

REPORT INFORMATION
  Report Type: 
  Country: None (occurrence: None)
  Receive Date: 20050816
  Receipt Date: 20050816
  Transmission Date: 20060218
  Serious: Yes (Hospitalization)
  Sender: FDA-Public Use
  Company Number: None

PATIENT
  Age: 47 Year
  Sex: Female
  Weight: 78.4 kg

DRUGS (8)
  1. BACTRIM [Suspect]
     Indication: URINARY TRACT INFECTION
     Dosage: ONE BID [~1 WEEK]
  2. AMBIEN [Concomitant]
  3. PREDNISONE [Concomitant]
  4. BACLOFEN [Concomitant]
  5. FLEXERIL [Concomitant]
  6. PLAQUENIL [Concomitant]
  7. PERCOCET [Concomitant]
  8. MS CONTIN [Concomitant]

REACTIONS (4)
  - BLISTER [None]
  - PAIN OF SKIN [None]
  - PRURITUS [None]
  - RASH [None]
